FAERS Safety Report 4388744-1 (Version None)
Quarter: 2004Q2

REPORT INFORMATION
  Report Type: 
  Country: None (occurrence: None)
  Receive Date: 20040624
  Receipt Date: 20040610
  Transmission Date: 20050107
  Serious: Yes (Life-Threatening)
  Sender: FDA-Public Use
  Company Number: 207121

PATIENT
  Age: 48 Year
  Sex: Female

DRUGS (3)
  1. RITUXAN [Suspect]
     Indication: SYSTEMIC LUPUS ERYTHEMATOSUS
     Dates: start: 20040308, end: 20040308
  2. RITUXAN [Suspect]
     Indication: SYSTEMIC LUPUS ERYTHEMATOSUS
     Dates: start: 20040609, end: 20040609
  3. DIPHENHYDRAMINE (DIPHENHYDRAMINE NOS) [Concomitant]

REACTIONS (10)
  - ANAPHYLACTIC REACTION [None]
  - BACTERIAL INFECTION [None]
  - INFLAMMATION [None]
  - INFUSION RELATED REACTION [None]
  - LOSS OF CONSCIOUSNESS [None]
  - LYMPHADENOPATHY [None]
  - MUSCLE SPASMS [None]
  - POSTURING [None]
  - RESPIRATORY ARREST [None]
  - SYSTEMIC LUPUS ERYTHEMATOSUS [None]
